FAERS Safety Report 9302351 (Version 1)
Quarter: 2013Q2

REPORT INFORMATION
  Report Type: Spontaneous
  Country: DE (occurrence: None)
  Receive Date: 20130517
  Receipt Date: 20130517
  Transmission Date: 20140414
  Serious: Yes (Other)
  Sender: FDA-Public Use
  Company Number: GER/GER/13/0029590

PATIENT
  Sex: Female
  Weight: 69 kg

DRUGS (7)
  1. VENLAFAXINE (VENLAFAXINE HYDROCHLORIDE) (UNKNOWN) (VENLAFAXINE HYDROCHLORIDE) [Suspect]
     Indication: ANXIETY DISORDER
     Route: 048
     Dates: start: 20111027, end: 20120729
  2. METOPROLOL (METOPROLOL TARTRATE) [Concomitant]
  3. AMOXICILLIN (AMOXICILLIN TRIHYDRATE) [Concomitant]
  4. PARACETAMOL (PARACETAMOL) [Concomitant]
  5. VOMEX A (DIMENHYDRINATE) [Concomitant]
  6. MAALOXAN (ALUDROX /00082501/) [Concomitant]
  7. FEMIBION SCHWANGERSCHAFT 1(FEMIBION) [Concomitant]

REACTIONS (5)
  - Tachycardia [None]
  - Cystitis [None]
  - Obstructed labour [None]
  - Caesarean section [None]
  - Exposure during pregnancy [None]
